FAERS Safety Report 7553480-7 (Version None)
Quarter: 2011Q2

REPORT INFORMATION
  Report Type: 
  Country: None (occurrence: None)
  Receive Date: 20110617
  Receipt Date: 20101231
  Transmission Date: 20111010
  Serious: No
  Sender: FDA-Public Use
  Company Number: US-BAYER-2011-004548

PATIENT
  Age: 6 Year
  Sex: Female

DRUGS (1)
  1. BETASERON [Suspect]
     Dosage: UNK
     Dates: start: 20101230, end: 20101230

REACTIONS (2)
  - INJECTION SITE HAEMORRHAGE [None]
  - CONTUSION [None]
